FAERS Safety Report 10429260 (Version 1)
Quarter: 2014Q3

REPORT INFORMATION
  Report Type: Spontaneous
  Country: US (occurrence: US)
  Receive Date: 20140904
  Receipt Date: 20140904
  Transmission Date: 20150326
  Serious: Yes (Other)
  Sender: FDA-Public Use
  Company Number: US-ROCHE-1457525

PATIENT
  Sex: Female

DRUGS (1)
  1. AVASTIN [Suspect]
     Active Substance: BEVACIZUMAB
     Indication: LUNG DISORDER
     Route: 065
     Dates: start: 2009

REACTIONS (4)
  - Haemoptysis [Unknown]
  - Cerebrovascular accident [Unknown]
  - Colonic fistula [Unknown]
  - Hypertension [Unknown]
